FAERS Safety Report 15591377 (Version 1)
Quarter: 2018Q4

REPORT INFORMATION
  Report Type: Spontaneous
  Country: FR (occurrence: FR)
  Receive Date: 20181106
  Receipt Date: 20181106
  Transmission Date: 20190205
  Serious: Yes (Hospitalization)
  Sender: FDA-Public Use
  Company Number: FR-009507513-1811FRA000507

PATIENT
  Age: 86 Year
  Sex: Female
  Weight: 62 kg

DRUGS (4)
  1. CUBICIN [Suspect]
     Active Substance: DAPTOMYCIN
     Indication: ARTHRITIS INFECTIVE
     Dosage: 700 MILLIGRAM, QOD
     Route: 042
     Dates: start: 20180721, end: 20180831
  2. CANCIDAS [Suspect]
     Active Substance: CASPOFUNGIN ACETATE
     Indication: FUNGAEMIA
     Dosage: 50 MILLIGRAM, QD
     Route: 042
     Dates: start: 20180816, end: 20180907
  3. TAZOBACTAM [Suspect]
     Active Substance: TAZOBACTAM
     Indication: ARTHRITIS INFECTIVE
     Dosage: 1000 MILLIGRAM, QD
     Route: 042
     Dates: start: 20180721, end: 20180831
  4. PIPERACILLIN SODIUM [Suspect]
     Active Substance: PIPERACILLIN SODIUM
     Indication: ARTHRITIS INFECTIVE
     Dosage: 8 GRAM, QD
     Route: 042
     Dates: start: 20180721, end: 20180831

REACTIONS (1)
  - Drug reaction with eosinophilia and systemic symptoms [Recovering/Resolving]

NARRATIVE: CASE EVENT DATE: 20180901
